FAERS Safety Report 8985075 (Version 1)
Quarter: 2012Q4

REPORT INFORMATION
  Report Type: Report from Study
  Country: DE (occurrence: DE)
  Receive Date: 20121226
  Receipt Date: 20121226
  Transmission Date: 20130627
  Serious: Yes (Hospitalization)
  Sender: FDA-Public Use
  Company Number: DE-TEVA-377610USA

PATIENT
  Age: 63 Year
  Sex: Female
  Weight: 78 kg

DRUGS (2)
  1. TREANDA [Suspect]
     Indication: NON-HODGKIN^S LYMPHOMA
     Route: 042
     Dates: start: 20100128
  2. RITUXIMAB [Suspect]
     Indication: NON-HODGKIN^S LYMPHOMA
     Dates: start: 20100127

REACTIONS (2)
  - Herpes simplex [Recovered/Resolved]
  - Neutropenia [Recovered/Resolved]
